FAERS Safety Report 9067538 (Version 1)
Quarter: 2013Q1

REPORT INFORMATION
  Report Type: Spontaneous
  Country: BR (occurrence: BR)
  Receive Date: 20130129
  Receipt Date: 20130129
  Transmission Date: 20140127
  Serious: Yes (Other)
  Sender: FDA-Public Use
  Company Number: PHHY2013BR007842

PATIENT
  Sex: Male
  Weight: 97 kg

DRUGS (5)
  1. DIOVAN HCT [Suspect]
     Indication: HYPERTENSION
     Dosage: 1 DF, PER DAY
     Route: 048
  2. OMEPRAZOLE [Concomitant]
     Indication: GASTRITIS
     Dosage: 20 MG, PER DAY
     Route: 048
  3. CRESTOR [Concomitant]
     Indication: BLOOD CHOLESTEROL ABNORMAL
     Dosage: 10 MG, PER DAY
     Route: 048
  4. GLIFAGE [Concomitant]
     Indication: DIABETES MELLITUS MANAGEMENT
     Dosage: 500 MG, BID
     Route: 048
  5. ARADOIS H [Concomitant]
     Indication: HYPERTENSION
     Dosage: 1 DF, PER DAY
     Route: 048

REACTIONS (1)
  - Prostate cancer [Not Recovered/Not Resolved]
